FAERS Safety Report 7570977-4 (Version None)
Quarter: 2011Q2

REPORT INFORMATION
  Report Type: 
  Country: None (occurrence: None)
  Receive Date: 20110624
  Receipt Date: 20110614
  Transmission Date: 20111010
  Serious: Yes (Hospitalization, Other)
  Sender: FDA-Public Use
  Company Number: US-ROCHE-698054

PATIENT
  Sex: Male
  Weight: 89.8 kg

DRUGS (10)
  1. AMNESTEEM [Suspect]
     Route: 048
     Dates: start: 20040513, end: 20040601
  2. KEFLEX [Concomitant]
  3. AMNESTEEM [Suspect]
     Route: 048
     Dates: start: 20040101, end: 20040201
  4. METHYLPREDNISOLONE [Concomitant]
  5. ACCUTANE [Suspect]
     Route: 065
     Dates: start: 20010101
  6. ACCUTANE [Suspect]
     Route: 065
     Dates: start: 20040211, end: 20040301
  7. AMNESTEEM [Suspect]
     Dosage: 40 MG BID ALTERNATING WITH 40 MG TID EVERY THIRD DAY
     Route: 048
     Dates: start: 20040409
  8. AMNESTEEM [Suspect]
     Route: 048
     Dates: start: 20040301
  9. CEPHALEXIN [Concomitant]
  10. DDAVP [Concomitant]

REACTIONS (6)
  - EMOTIONAL DISORDER [None]
  - ARTHRALGIA [None]
  - CROHN'S DISEASE [None]
  - MYALGIA [None]
  - INFLAMMATORY BOWEL DISEASE [None]
  - XEROSIS [None]
